FAERS Safety Report 18022374 (Version 1)
Quarter: 2020Q3

REPORT INFORMATION
  Report Type: Spontaneous
  Country: US (occurrence: US)
  Receive Date: 20200714
  Receipt Date: 20200714
  Transmission Date: 20201103
  Serious: No
  Sender: FDA-Public Use
  Company Number: US-BAUSCH-BL-2020-018376

PATIENT
  Age: 74 Year
  Sex: Male

DRUGS (2)
  1. FLUOROURACIL. [Suspect]
     Active Substance: FLUOROURACIL
     Indication: PRECANCEROUS CONDITION
     Dosage: STARTED APPROXIMATELY, TWO OR THREE WEEKS AGO
     Route: 065
     Dates: start: 202006
  2. FLUOROURACIL. [Suspect]
     Active Substance: FLUOROURACIL
     Indication: PRODUCT USE IN UNAPPROVED INDICATION

REACTIONS (3)
  - Product use in unapproved indication [Unknown]
  - Skin irritation [Not Recovered/Not Resolved]
  - Skin discomfort [Not Recovered/Not Resolved]

NARRATIVE: CASE EVENT DATE: 202006
